FAERS Safety Report 8480845-1 (Version None)
Quarter: 2012Q2

REPORT INFORMATION
  Report Type: 
  Country: None (occurrence: None)
  Receive Date: 20120626
  Receipt Date: 20120626
  Transmission Date: 20120825
  Serious: Yes (Other)
  Sender: FDA-Public Use
  Company Number: None

PATIENT
  Age: 54 Year
  Sex: Female

DRUGS (1)
  1. HUMIRA [Suspect]
     Indication: CROHN'S DISEASE
     Dosage: 40MG EVERY WEEK SQ
     Route: 058
     Dates: start: 20111223, end: 20120625

REACTIONS (3)
  - MUSCULOSKELETAL PAIN [None]
  - JOINT SWELLING [None]
  - ARTHRALGIA [None]
